FAERS Safety Report 19069747 (Version 1)
Quarter: 2021Q1

REPORT INFORMATION
  Report Type: Spontaneous
  Country: SK (occurrence: SK)
  Receive Date: 20210329
  Receipt Date: 20210329
  Transmission Date: 20210420
  Serious: No
  Sender: FDA-Public Use
  Company Number: SK-BAUSCH-BL-2021-008514

PATIENT
  Age: 42 Year
  Sex: Female

DRUGS (4)
  1. GENTAMICINE [Suspect]
     Active Substance: GENTAMICIN
     Indication: TUMOUR NECROSIS
     Route: 042
  2. DEXAMETHASONE. [Suspect]
     Active Substance: DEXAMETHASONE
     Indication: MATERNAL THERAPY TO ENHANCE FOETAL LUNG MATURITY
     Route: 065
  3. NADROPARINE [Suspect]
     Active Substance: NADROPARIN
     Indication: TUMOUR NECROSIS
     Route: 058
  4. AMPICILLIN [Suspect]
     Active Substance: AMPICILLIN
     Indication: TUMOUR NECROSIS
     Route: 042

REACTIONS (2)
  - Maternal exposure during pregnancy [Unknown]
  - Normal newborn [Unknown]
